FAERS Safety Report 5012187-0 (Version None)
Quarter: 2006Q2

REPORT INFORMATION
  Report Type: 
  Country: None (occurrence: None)
  Receive Date: 20060524
  Receipt Date: 20060511
  Transmission Date: 20061013
  Serious: Yes (Other)
  Sender: FDA-Public Use
  Company Number: 2006063746

PATIENT
  Age: 58 Year
  Sex: Male

DRUGS (5)
  1. DETROL LA [Suspect]
     Indication: URINARY INCONTINENCE
     Dosage: 4 MG (4 MG, 1 IN 1 D), ORAL
     Route: 048
     Dates: start: 20060322
  2. OXYCONTIN [Suspect]
     Indication: ILL-DEFINED DISORDER
  3. CALCIUM WITH VITAMIN D (CALCIUM PHOSPHATE, CALCIUM SODIUM LACTATE, ERG [Suspect]
     Indication: ILL-DEFINED DISORDER
  4. ALL OTHER THERAPEUTIC PRODUCTS (ALL OTHER THERAPEUTIC PRODUCTS) [Suspect]
     Indication: ILL-DEFINED DISORDER
  5. ... [Concomitant]

REACTIONS (8)
  - DRUG INTERACTION [None]
  - DRY MOUTH [None]
  - DYSPHONIA [None]
  - DYSURIA [None]
  - LARYNGEAL DISORDER [None]
  - LIVER DISORDER [None]
  - PANCREATITIS ACUTE [None]
  - TREATMENT NONCOMPLIANCE [None]
